FAERS Safety Report 5632871-5 (Version None)
Quarter: 2008Q1

REPORT INFORMATION
  Report Type: 
  Country: None (occurrence: None)
  Receive Date: 20080221
  Receipt Date: 20080211
  Transmission Date: 20080703
  Serious: Yes (Other)
  Sender: FDA-Public Use
  Company Number: US-ASTRAZENECA-2006UW24470

PATIENT
  Age: 55 Year
  Sex: Female
  Weight: 84.1 kg

DRUGS (7)
  1. SEROQUEL [Suspect]
     Indication: DEPRESSION
     Route: 048
     Dates: start: 20000901, end: 20050801
  2. PROLIXIN [Concomitant]
     Dates: start: 20040101
  3. HALDOL [Concomitant]
  4. NAVANE [Concomitant]
  5. RISPERDAL [Concomitant]
     Dates: start: 19980901
  6. ZYPREXA [Concomitant]
     Dates: start: 19970101
  7. THORAZINE [Concomitant]
     Dates: start: 19960101

REACTIONS (5)
  - BLOOD TRIGLYCERIDES INCREASED [None]
  - DIABETES MELLITUS [None]
  - LUNG NEOPLASM MALIGNANT [None]
  - LUNG OPERATION [None]
  - OVARIAN CYST [None]
